FAERS Safety Report 9346717 (Version 4)
Quarter: 2013Q3

REPORT INFORMATION
  Report Type: Other
  Country: JP (occurrence: JP)
  Receive Date: 20130613
  Receipt Date: 20130913
  Transmission Date: 20140515
  Serious: Yes (Hospitalization, Other)
  Sender: FDA-Public Use
  Company Number: JP-BRISTOL-MYERS SQUIBB COMPANY-19010941

PATIENT
  Age: 37 Year
  Sex: Male
  Weight: 90 kg

DRUGS (6)
  1. ABILIFY TABS [Suspect]
     Indication: BIPOLAR DISORDER
     Route: 048
     Dates: start: 20120426, end: 20120515
  2. LIMAS [Suspect]
     Indication: BIPOLAR DISORDER
     Dosage: TABS
     Route: 048
     Dates: start: 20120426, end: 20120515
  3. LEVOTOMIN [Suspect]
     Indication: BIPOLAR DISORDER
     Route: 048
     Dates: start: 20120426, end: 20120515
  4. SERTRALINE [Suspect]
     Dosage: TABS
  5. LITHIUM [Suspect]
     Dosage: TABS
  6. VALPROATE SODIUM [Suspect]
     Dates: start: 20120426, end: 20120515

REACTIONS (12)
  - Pneumonia [Recovered/Resolved]
  - Renal impairment [Recovered/Resolved]
  - Altered state of consciousness [Recovering/Resolving]
  - Electroencephalogram abnormal [Recovering/Resolving]
  - Electrocardiogram abnormal [Recovering/Resolving]
  - Thyroid function test abnormal [Recovering/Resolving]
  - Toxicity to various agents [Recovered/Resolved]
  - Dysphagia [Recovered/Resolved]
  - Agitation [Unknown]
  - Blood creatine phosphokinase increased [Unknown]
  - Dehydration [Unknown]
  - Gait disturbance [Unknown]
